FAERS Safety Report 16381051 (Version 2)
Quarter: 2019Q2

REPORT INFORMATION
  Report Type: Spontaneous
  Country: JP (occurrence: JP)
  Receive Date: 20190602
  Receipt Date: 20190607
  Transmission Date: 20190711
  Serious: Yes (Death, Hospitalization, Other)
  Sender: FDA-Public Use
  Company Number: PHJP2019JP005316

PATIENT
  Sex: Female

DRUGS (12)
  1. RHEUMATREX [Concomitant]
     Active Substance: METHOTREXATE SODIUM
     Indication: RHEUMATOID ARTHRITIS
     Dosage: UNK
     Route: 065
  2. ERIBULIN [Concomitant]
     Active Substance: ERIBULIN
     Indication: PRODUCT USED FOR UNKNOWN INDICATION
     Dosage: UNK
     Route: 065
     Dates: start: 20181205
  3. HYDROMORPHONE [Concomitant]
     Active Substance: HYDROMORPHONE
     Indication: PRODUCT USED FOR UNKNOWN INDICATION
     Dosage: UNK UNK, PRN
     Route: 048
  4. ELENTAL [Concomitant]
     Active Substance: AMINO ACIDS\CARBOHYDRATES\MINERALS\SOYBEAN OIL\VITAMINS
     Indication: PRODUCT USED FOR UNKNOWN INDICATION
     Dosage: UNK
     Route: 048
  5. BISONO [Concomitant]
     Active Substance: BISOPROLOL
     Indication: PRODUCT USED FOR UNKNOWN INDICATION
     Dosage: 8 MG, UNK
     Route: 065
  6. VOTRIENT [Suspect]
     Active Substance: PAZOPANIB HYDROCHLORIDE
     Indication: PHYLLODES TUMOUR
     Dosage: 800 MG, UNK
     Route: 048
     Dates: start: 20190326, end: 20190508
  7. TAKECAB [Concomitant]
     Active Substance: VONOPRAZAN FUMURATE
     Indication: PRODUCT USED FOR UNKNOWN INDICATION
     Dosage: 20 MG, UNK
     Route: 048
  8. TRYPTANOL [Concomitant]
     Active Substance: AMITRIPTYLINE
     Indication: PRODUCT USED FOR UNKNOWN INDICATION
     Dosage: 25 MG, UNK
     Route: 048
  9. ZOLEDRONATE [Suspect]
     Active Substance: ZOLEDRONIC ACID
     Indication: PRODUCT USED FOR UNKNOWN INDICATION
     Dosage: UNK
     Route: 065
     Dates: start: 20181128
  10. DENOTAS [Concomitant]
     Active Substance: CALCIUM CARBONATE\CHOLECALCIFEROL\MAGNESIUM CARBONATE
     Indication: PRODUCT USED FOR UNKNOWN INDICATION
     Dosage: 2 DF, UNK
     Route: 048
  11. DECADRON [Concomitant]
     Active Substance: DEXAMETHASONE
     Indication: PRODUCT USED FOR UNKNOWN INDICATION
     Dosage: 8 MG, UNK
     Route: 048
  12. ERIBULIN [Concomitant]
     Active Substance: ERIBULIN
     Dosage: UNK
     Route: 065
     Dates: start: 20190107

REACTIONS (9)
  - Phyllodes tumour [Fatal]
  - Malignant neoplasm progression [Fatal]
  - Platelet count decreased [Unknown]
  - Large intestine perforation [Unknown]
  - Liver disorder [Unknown]
  - Peritonitis [Unknown]
  - Metastases to lung [Fatal]
  - Dyspnoea [Fatal]
  - Disseminated intravascular coagulation [Unknown]

NARRATIVE: CASE EVENT DATE: 20190508
